FAERS Safety Report 21042895 (Version 1)
Quarter: 2022Q3

REPORT INFORMATION
  Report Type: Spontaneous
  Country: CN (occurrence: CN)
  Receive Date: 20220705
  Receipt Date: 20220705
  Transmission Date: 20221026
  Serious: Yes (Other)
  Sender: FDA-Public Use
  Company Number: CN-AMGEN-CHNSP2022110777

PATIENT
  Age: 28 Year
  Sex: Female

DRUGS (3)
  1. XGEVA [Suspect]
     Active Substance: DENOSUMAB
     Indication: Metastases to bone
     Dosage: UNK
     Route: 065
  2. CATEQUENTINIB [Concomitant]
     Active Substance: CATEQUENTINIB
     Indication: Neoplasm
     Dosage: 12 MILLIGRAM, QD (12 MG, QD, D1-14, Q3W)
     Route: 065
     Dates: start: 201809
  3. TORIPALIMAB [Concomitant]
     Active Substance: TORIPALIMAB
     Dosage: 240 MILLIGRAM, Q3WK
     Route: 041
     Dates: start: 201905

REACTIONS (1)
  - Alveolar soft part sarcoma [Unknown]

NARRATIVE: CASE EVENT DATE: 20201201
